FAERS Safety Report 16746794 (Version 1)
Quarter: 2019Q3

REPORT INFORMATION
  Report Type: Spontaneous
  Country: US (occurrence: US)
  Receive Date: 20190827
  Receipt Date: 20190827
  Transmission Date: 20191005
  Serious: No
  Sender: FDA-Public Use
  Company Number: US-SA-2019SA229243

PATIENT
  Sex: Male

DRUGS (1)
  1. LOVENOX [Suspect]
     Active Substance: ENOXAPARIN SODIUM
     Dosage: UNK UNK, BID
     Route: 065

REACTIONS (4)
  - Condition aggravated [Unknown]
  - Abdominal distension [Unknown]
  - Contusion [Unknown]
  - Pain [Unknown]
